FAERS Safety Report 7718697-7 (Version None)
Quarter: 2011Q3

REPORT INFORMATION
  Report Type: 
  Country: None (occurrence: None)
  Receive Date: 20110830
  Receipt Date: 20110818
  Transmission Date: 20111222
  Serious: Yes (Hospitalization, Other)
  Sender: FDA-Public Use
  Company Number: CH-ELI_LILLY_AND_COMPANY-CH201108006360

PATIENT
  Age: 51 Year
  Sex: Female

DRUGS (5)
  1. ATORVASTATIN CALCIUM [Concomitant]
  2. METOPROLOL SUCCINATE [Concomitant]
     Indication: HYPERTENSION
  3. ZYPREXA [Suspect]
     Dosage: 10 MG, QD
     Route: 048
  4. XANAX [Concomitant]
  5. REMERON [Concomitant]
     Dosage: 45 MG, QD
     Route: 048

REACTIONS (3)
  - DIABETES MELLITUS [None]
  - HOSPITALISATION [None]
  - DIABETIC KETOACIDOSIS [None]
